FAERS Safety Report 6209408-5 (Version None)
Quarter: 2009Q2

REPORT INFORMATION
  Report Type: 
  Country: None (occurrence: None)
  Receive Date: 20090529
  Receipt Date: 20090521
  Transmission Date: 20091009
  Serious: Yes (Disabling)
  Sender: FDA-Public Use
  Company Number: GB-MERCK-0905GBR00076

PATIENT
  Age: 80 Year
  Sex: Female
  Weight: 80 kg

DRUGS (8)
  1. FOSAMAX [Suspect]
     Indication: OSTEOPOROTIC FRACTURE
     Route: 048
     Dates: start: 20080222
  2. CALCIUM CARBONATE AND CHOLECALCIFEROL [Concomitant]
     Route: 065
  3. ASPIRIN [Concomitant]
     Route: 065
  4. BEZAFIBRATE [Concomitant]
     Route: 065
  5. AMILORIDE HYDROCHLORIDE AND FUROSEMIDE [Concomitant]
     Route: 065
  6. GABAPENTIN [Concomitant]
     Route: 065
  7. COZAAR [Concomitant]
     Route: 048
  8. OMEPRAZOLE [Concomitant]
     Route: 065

REACTIONS (1)
  - FEMUR FRACTURE [None]
